FAERS Safety Report 13596977 (Version 1)
Quarter: 2017Q2

REPORT INFORMATION
  Report Type: Report from Study
  Country: FR (occurrence: FR)
  Receive Date: 20170531
  Receipt Date: 20170531
  Transmission Date: 20170830
  Serious: Yes (Other)
  Sender: FDA-Public Use
  Company Number: FR-ROCHE-1941822

PATIENT
  Age: 76 Year
  Sex: Female

DRUGS (1)
  1. VEMURAFENIB [Suspect]
     Active Substance: VEMURAFENIB
     Indication: METASTATIC MALIGNANT MELANOMA
     Route: 065

REACTIONS (5)
  - Alopecia [Unknown]
  - Skin toxicity [Unknown]
  - Electrocardiogram QT prolonged [Unknown]
  - Keratosis pilaris [Unknown]
  - Cardiac failure [Unknown]
